FAERS Safety Report 15940838 (Version 4)
Quarter: 2023Q1

REPORT INFORMATION
  Report Type: Spontaneous
  Country: US (occurrence: None)
  Receive Date: 20190208
  Receipt Date: 20230227
  Transmission Date: 20230417
  Serious: Yes (Other)
  Sender: FDA-Public Use
  Company Number: 2018SF65261

PATIENT
  Age: 27135 Day
  Sex: Female
  Weight: 56.7 kg

DRUGS (36)
  1. NEXIUM [Suspect]
     Active Substance: ESOMEPRAZOLE MAGNESIUM
     Indication: Gastrooesophageal reflux disease
     Route: 048
     Dates: start: 20080321
  2. NEXIUM [Suspect]
     Active Substance: ESOMEPRAZOLE MAGNESIUM
     Indication: Gastrooesophageal reflux disease
     Dosage: GENERIC
     Route: 065
  3. NEXIUM [Suspect]
     Active Substance: ESOMEPRAZOLE MAGNESIUM
     Indication: Gastrooesophageal reflux disease
     Route: 048
     Dates: start: 2016, end: 2018
  4. NEXIUM [Suspect]
     Active Substance: ESOMEPRAZOLE MAGNESIUM
     Indication: Gastrooesophageal reflux disease
     Dosage: GENERIC
     Route: 065
     Dates: start: 2016, end: 2018
  5. NEXIUM [Suspect]
     Active Substance: ESOMEPRAZOLE MAGNESIUM
     Indication: Gastrooesophageal reflux disease
     Route: 048
     Dates: start: 2003, end: 2016
  6. NEXIUM [Suspect]
     Active Substance: ESOMEPRAZOLE MAGNESIUM
     Indication: Gastrooesophageal reflux disease
     Route: 048
     Dates: start: 20180409
  7. NEXIUM [Suspect]
     Active Substance: ESOMEPRAZOLE MAGNESIUM
     Indication: Gastrooesophageal reflux disease
     Dosage: 40 MG
     Route: 048
     Dates: start: 20160504
  8. NEXIUM [Suspect]
     Active Substance: ESOMEPRAZOLE MAGNESIUM
     Indication: Gastrooesophageal reflux disease
     Dosage: 40 MG; GENERIC
     Route: 065
     Dates: start: 20160803
  9. RANITIDINE [Suspect]
     Active Substance: RANITIDINE
     Indication: Gastrooesophageal reflux disease
     Route: 065
     Dates: start: 2017
  10. DIOVAN [Concomitant]
     Active Substance: VALSARTAN
     Indication: Hypertension
     Route: 048
     Dates: start: 2009
  11. FUROSEMIDE [Concomitant]
     Active Substance: FUROSEMIDE
     Indication: Fluid balance assessment
     Route: 048
     Dates: start: 2017
  12. SIMVASTATIN [Concomitant]
     Active Substance: SIMVASTATIN
     Indication: Cardiac disorder
     Dosage: DAILY IN THE EVENING
     Route: 048
  13. PROAIR HFA [Concomitant]
     Active Substance: ALBUTEROL SULFATE
  14. GABAPENTIN [Concomitant]
     Active Substance: GABAPENTIN
  15. REGLAN [Concomitant]
     Active Substance: METOCLOPRAMIDE HYDROCHLORIDE
  16. CLONAZEPAM [Concomitant]
     Active Substance: CLONAZEPAM
  17. TYLENOL [Concomitant]
     Active Substance: ACETAMINOPHEN
  18. NEOMYCIN [Concomitant]
     Active Substance: NEOMYCIN
  19. PAROXETINE [Concomitant]
     Active Substance: PAROXETINE
  20. CEFDINIR [Concomitant]
     Active Substance: CEFDINIR
  21. ALBUTEROL [Concomitant]
     Active Substance: ALBUTEROL
  22. COMBIVENT [Concomitant]
     Active Substance: ALBUTEROL SULFATE\IPRATROPIUM BROMIDE
  23. AMOXICILLIN [Concomitant]
     Active Substance: AMOXICILLIN
     Indication: Sinusitis
     Route: 065
     Dates: start: 2018, end: 2019
  24. NAPROXEN [Concomitant]
     Active Substance: NAPROXEN
     Indication: Cranial nerve infection
     Route: 065
     Dates: start: 2015
  25. NAPROXEN [Concomitant]
     Active Substance: NAPROXEN
     Indication: Neuralgia
     Route: 065
     Dates: start: 2015
  26. LEVAQUIN [Concomitant]
     Active Substance: LEVOFLOXACIN
     Route: 065
  27. LISINOPRIL [Concomitant]
     Active Substance: LISINOPRIL
     Indication: Blood pressure measurement
     Route: 065
     Dates: start: 2009
  28. DOXYCYCLINE [Concomitant]
     Active Substance: DOXYCYCLINE
     Indication: Hypertension
     Route: 065
  29. IRON [Concomitant]
     Active Substance: IRON
     Indication: Blood iron abnormal
     Route: 065
     Dates: start: 2016
  30. VALERIAN [Concomitant]
     Active Substance: VALERIAN
     Indication: Routine health maintenance
     Route: 065
     Dates: start: 2016
  31. HYDROCODONE BITARTRATE AND ACETAMINOPHEN [Concomitant]
     Active Substance: ACETAMINOPHEN\HYDROCODONE BITARTRATE
     Dosage: 5/500
     Route: 048
     Dates: start: 20080104
  32. DOXAZOSIN MESYLATE [Concomitant]
     Active Substance: DOXAZOSIN MESYLATE
     Dosage: 2 MG
     Route: 048
     Dates: start: 20080109
  33. CYCLOBENZAPRINE [Concomitant]
     Active Substance: CYCLOBENZAPRINE
     Dosage: 10 MG
     Route: 048
     Dates: start: 20080109
  34. TOPROL XL [Concomitant]
     Active Substance: METOPROLOL SUCCINATE
     Dosage: 50 MG
     Route: 065
     Dates: start: 20080109
  35. ALPRAZOLAM [Concomitant]
     Active Substance: ALPRAZOLAM
     Dosage: 0.25 MG
     Route: 048
     Dates: start: 20080311
  36. FEXOFENADINE HCL [Concomitant]
     Active Substance: FEXOFENADINE HYDROCHLORIDE
     Dosage: 60 MG
     Route: 048
     Dates: start: 20080502

REACTIONS (5)
  - Chronic kidney disease [Unknown]
  - Renal failure [Unknown]
  - Renal injury [Unknown]
  - Nephropathy [Not Recovered/Not Resolved]
  - Rebound acid hypersecretion [Unknown]

NARRATIVE: CASE EVENT DATE: 20160412
